FAERS Safety Report 18351743 (Version 3)
Quarter: 2020Q4

REPORT INFORMATION
  Report Type: Spontaneous
  Country: JP (occurrence: JP)
  Receive Date: 20201006
  Receipt Date: 20201026
  Transmission Date: 20210114
  Serious: Yes (Other)
  Sender: FDA-Public Use
  Company Number: JP-JNJFOC-20200949265

PATIENT
  Age: 86 Year
  Sex: Male

DRUGS (1)
  1. ZYTIGA [Suspect]
     Active Substance: ABIRATERONE ACETATE
     Indication: PROSTATE CANCER
     Route: 048

REACTIONS (5)
  - Prostate cancer [Unknown]
  - Neuroendocrine carcinoma [Unknown]
  - Abdominal mass [Unknown]
  - SARS-CoV-2 test positive [Unknown]
  - Small cell carcinoma [Unknown]
